FAERS Safety Report 22624892 (Version 1)
Quarter: 2023Q2

REPORT INFORMATION
  Report Type: Spontaneous
  Country: US (occurrence: None)
  Receive Date: 20230620
  Receipt Date: 20230620
  Transmission Date: 20230722
  Serious: Yes (Other)
  Sender: FDA-Public Use
  Company Number: None

PATIENT
  Age: 77 Year
  Sex: Female
  Weight: 63.3 kg

DRUGS (2)
  1. CISPLATIN [Suspect]
     Active Substance: CISPLATIN
     Indication: Ovarian cancer metastatic
     Dosage: OTHER FREQUENCY : EVERY 3 WEEK;?
     Route: 042
     Dates: start: 20230324
  2. CISPLATIN [Concomitant]
     Active Substance: CISPLATIN
     Dates: start: 20230324

REACTIONS (1)
  - Renal impairment [None]

NARRATIVE: CASE EVENT DATE: 20230616
